FAERS Safety Report 7040595-5 (Version None)
Quarter: 2010Q4

REPORT INFORMATION
  Report Type: 
  Country: None (occurrence: None)
  Receive Date: 20101012
  Receipt Date: 20101001
  Transmission Date: 20110411
  Serious: Yes (Hospitalization)
  Sender: FDA-Public Use
  Company Number: DE-BRISTOL-MYERS SQUIBB COMPANY-14995781

PATIENT
  Age: 71 Year
  Sex: Male
  Weight: 68 kg

DRUGS (3)
  1. CETUXIMAB [Suspect]
     Indication: NON-SMALL CELL LUNG CANCER
     Dosage: TOTAL: 446.5MG LAST DOSE:8DEC2009 NO OF INF:2
     Route: 065
     Dates: start: 20091201, end: 20091221
  2. CARBOPLATIN [Suspect]
     Indication: NON-SMALL CELL LUNG CANCER
     Dosage: 1 DF = 5 AUC TOTAL:532.3MG NO OF INF:1
     Route: 065
     Dates: start: 20091201, end: 20091221
  3. GEMZAR [Suspect]
     Indication: NON-SMALL CELL LUNG CANCER
     Dosage: LAST DOSE:8DEC2009 NO OF INF:2 TOTAL:2143.3MG
     Route: 065
     Dates: start: 20091201, end: 20091221

REACTIONS (2)
  - PANCYTOPENIA [None]
  - PULMONARY HAEMORRHAGE [None]
